FAERS Safety Report 8433661-0 (Version None)
Quarter: 2012Q2

REPORT INFORMATION
  Report Type: 
  Country: None (occurrence: None)
  Receive Date: 20120613
  Receipt Date: 20120605
  Transmission Date: 20120825
  Serious: Yes (Hospitalization)
  Sender: FDA-Public Use
  Company Number: US-B.I. PHARMACEUTICALS,INC./RIDGEFIELD-2012-BP-10634BP

PATIENT
  Sex: Female
  Weight: 133.54 kg

DRUGS (25)
  1. SYNTHROID [Concomitant]
     Indication: HYPOTHYROIDISM
     Dosage: 150 MCG
     Route: 048
     Dates: start: 20120223
  2. PERCOCET [Concomitant]
     Indication: PAIN
     Dates: start: 20120517
  3. ALDACTONE [Concomitant]
     Dosage: 50 MG
     Route: 048
  4. DUONEB [Concomitant]
     Route: 055
  5. NITROSTAT [Concomitant]
  6. ZOLOFT [Concomitant]
     Dosage: 100 MG
     Dates: start: 20120320
  7. MULTI-VITAMIN [Concomitant]
  8. PRADAXA [Suspect]
     Indication: ATRIAL FIBRILLATION
     Dosage: 300 MG
     Route: 048
     Dates: start: 20111201, end: 20120126
  9. COMBIVENT [Concomitant]
     Indication: ASTHMA
     Route: 055
  10. NAPROSYN [Concomitant]
     Indication: HYPERTENSIVE HEART DISEASE
     Dates: start: 20110628
  11. OXYGEN [Concomitant]
     Indication: CHRONIC OBSTRUCTIVE PULMONARY DISEASE
  12. PRADAXA [Suspect]
     Indication: CEREBROVASCULAR ACCIDENT PROPHYLAXIS
  13. SYMBICORT [Concomitant]
     Indication: ASTHMA
     Dosage: 4 PUF
     Route: 055
     Dates: start: 20110718
  14. FLEXERIL [Concomitant]
     Dates: start: 20120517
  15. OMEPRAZOLE [Concomitant]
     Indication: GASTROOESOPHAGEAL REFLUX DISEASE
     Dosage: 80 MG
     Dates: start: 20120307
  16. NORVASC [Concomitant]
     Dosage: 5 MG
     Dates: start: 20120316
  17. FUROSEMIDE [Concomitant]
  18. FERROUS SULFATE TAB [Concomitant]
  19. PRAVASTATIN SODIUM [Concomitant]
     Indication: HYPERCHOLESTEROLAEMIA
     Dosage: 20 MG
     Dates: start: 20110701
  20. ALBUTEROL SULATE [Concomitant]
     Indication: ASTHMA
     Dates: start: 20110725
  21. METOLAZONE [Concomitant]
     Indication: OEDEMA
     Dosage: 2.5 MG
     Dates: start: 20111005
  22. DILTIAZEM HCL [Concomitant]
     Dosage: 240 MG
     Dates: start: 20120307
  23. XANAX [Concomitant]
     Route: 048
  24. MULTAQ [Concomitant]
     Dosage: 800 MG
     Route: 048
  25. ASPIRIN [Concomitant]
     Dosage: 81 MG
     Route: 048

REACTIONS (3)
  - HAEMATURIA [None]
  - NEPHROLITHIASIS [None]
  - LUNG INFECTION [None]
